FAERS Safety Report 8004941-8 (Version None)
Quarter: 2011Q4

REPORT INFORMATION
  Report Type: 
  Country: None (occurrence: None)
  Receive Date: 20111223
  Receipt Date: 20111213
  Transmission Date: 20120403
  Serious: Yes (Other)
  Sender: FDA-Public Use
  Company Number: JP-SANOFI-AVENTIS-2011SA022890

PATIENT
  Age: 67 Year
  Sex: Female
  Weight: 50 kg

DRUGS (3)
  1. ALLEGRA [Suspect]
     Indication: URTICARIA
     Route: 048
     Dates: start: 20110408, end: 20110414
  2. ALL OTHER THERAPEUTIC PRODUCTS [Suspect]
     Route: 048
     Dates: start: 20110403
  3. RESERPINE [Suspect]
     Indication: URTICARIA
     Route: 048
     Dates: start: 20110408, end: 20110411

REACTIONS (7)
  - HEPATIC FUNCTION ABNORMAL [None]
  - CONCOMITANT DISEASE AGGRAVATED [None]
  - NAUSEA [None]
  - URTICARIA [None]
  - HEPATITIS B [None]
  - PROTHROMBIN TIME SHORTENED [None]
  - ALANINE AMINOTRANSFERASE INCREASED [None]
